FAERS Safety Report 5219667-3 (Version None)
Quarter: 2007Q1

REPORT INFORMATION
  Report Type: 
  Country: None (occurrence: None)
  Receive Date: 20070125
  Receipt Date: 20061012
  Transmission Date: 20070707
  Serious: Yes (Other)
  Sender: FDA-Public Use
  Company Number: US-PFIZER INC-2006029561

PATIENT
  Sex: Female
  Weight: 75.3 kg

DRUGS (3)
  1. BEXTRA [Suspect]
     Indication: ROTATOR CUFF SYNDROME
     Dates: start: 20040401, end: 20040501
  2. ACTONEL [Concomitant]
  3. ORAL CONTRACEPTIVE NOS [Concomitant]
     Route: 048

REACTIONS (1)
  - STEVENS-JOHNSON SYNDROME [None]
